FAERS Safety Report 24884013 (Version 2)
Quarter: 2025Q2

REPORT INFORMATION
  Report Type: Spontaneous
  Country: US (occurrence: US)
  Receive Date: 20250124
  Receipt Date: 20250519
  Transmission Date: 20250716
  Serious: No
  Sender: JOHNSON AND JOHNSON
  Company Number: US-JNJFOC-20241284160

PATIENT
  Sex: Male

DRUGS (7)
  1. INVEGA SUSTENNA [Suspect]
     Active Substance: PALIPERIDONE PALMITATE
     Indication: Product used for unknown indication
     Route: 065
     Dates: start: 20240330
  2. INVEGA SUSTENNA [Suspect]
     Active Substance: PALIPERIDONE PALMITATE
     Route: 030
     Dates: end: 2024
  3. INVEGA SUSTENNA [Suspect]
     Active Substance: PALIPERIDONE PALMITATE
     Route: 030
  4. INVEGA [Suspect]
     Active Substance: PALIPERIDONE
     Indication: Product used for unknown indication
     Route: 048
  5. DEPAKOTE [Concomitant]
     Active Substance: DIVALPROEX SODIUM
     Indication: Affective disorder
     Dates: start: 20240327, end: 20240410
  6. INVEGA [Concomitant]
     Active Substance: PALIPERIDONE
     Indication: Bipolar disorder
     Dates: start: 20240320, end: 20240410
  7. XANAX [Concomitant]
     Active Substance: ALPRAZOLAM
     Indication: Anxiety
     Dates: start: 20240219, end: 20240402

REACTIONS (18)
  - Malaise [Unknown]
  - Adverse reaction [Unknown]
  - Insomnia [Not Recovered/Not Resolved]
  - Brain fog [Unknown]
  - Headache [Not Recovered/Not Resolved]
  - Stress urinary incontinence [Unknown]
  - Crying [Unknown]
  - Depression [Not Recovered/Not Resolved]
  - Sexual dysfunction [Unknown]
  - Extrapyramidal disorder [Unknown]
  - Dizziness [Unknown]
  - Drooling [Unknown]
  - Muscle atrophy [Unknown]
  - Weight decreased [Unknown]
  - Blood pressure increased [Unknown]
  - Blood bilirubin increased [Unknown]
  - Confusional state [Unknown]
  - Akathisia [Unknown]
